FAERS Safety Report 8463931-1 (Version None)
Quarter: 2012Q2

REPORT INFORMATION
  Report Type: 
  Country: None (occurrence: None)
  Receive Date: 20120625
  Receipt Date: 20120612
  Transmission Date: 20120825
  Serious: Yes (Other)
  Sender: FDA-Public Use
  Company Number: ES-ELI_LILLY_AND_COMPANY-ES201205003937

PATIENT
  Age: 75 Year
  Sex: Female

DRUGS (8)
  1. MICARDIS HCT [Concomitant]
     Indication: BACK PAIN
     Dosage: 1 DF, QD
  2. CYMBALTA [Suspect]
     Dosage: 30 MG, QD
     Dates: start: 20111106
  3. CYMBALTA [Suspect]
     Dosage: 60 MG, QD
     Route: 048
     Dates: start: 20111101, end: 20111105
  4. TRAMADOL HYDROCHLORIDE AND ACETAMINOPHEN [Concomitant]
     Indication: BACK PAIN
     Dosage: 1 DF, BID
     Route: 048
     Dates: start: 20100101
  5. DURAGESIC-100 [Concomitant]
     Indication: BACK PAIN
     Dosage: 25 UG, EVERY HOUR
     Route: 062
     Dates: start: 20100101
  6. CYMBALTA [Suspect]
     Indication: BACK PAIN
     Dosage: 30 MG, QD
     Route: 048
     Dates: start: 20111009, end: 20111030
  7. ACETAMINOPHEN [Concomitant]
     Indication: BACK PAIN
     Dosage: 650 MG, EVERY 8 HRS
     Route: 048
     Dates: start: 20080101
  8. LYRICA [Concomitant]
     Indication: BACK PAIN
     Dosage: 150 MG, BID
     Route: 048
     Dates: start: 20100101

REACTIONS (1)
  - BIPOLAR I DISORDER [None]
